FAERS Safety Report 7385278-7 (Version None)
Quarter: 2011Q1

REPORT INFORMATION
  Report Type: 
  Country: None (occurrence: None)
  Receive Date: 20110330
  Receipt Date: 20100422
  Transmission Date: 20110831
  Serious: No
  Sender: FDA-Public Use
  Company Number: US-MYLANLABS-2010S1004367

PATIENT
  Age: 34 Year
  Sex: Male

DRUGS (7)
  1. ATIVAN [Concomitant]
     Route: 048
  2. VIAGRA [Concomitant]
     Route: 048
  3. EMSAM [Suspect]
     Indication: ANXIETY
     Route: 062
     Dates: start: 20100204, end: 20100306
  4. EMSAM [Suspect]
     Indication: DEPRESSION
     Route: 062
     Dates: start: 20100306
  5. EMSAM [Suspect]
     Indication: DEPRESSION
     Route: 062
     Dates: start: 20100204, end: 20100306
  6. AMBIEN [Concomitant]
     Route: 048
  7. CIALIS [Concomitant]
     Route: 048

REACTIONS (1)
  - ORTHOSTATIC HYPOTENSION [None]
